FAERS Safety Report 6847884-5 (Version None)
Quarter: 2010Q3

REPORT INFORMATION
  Report Type: 
  Country: None (occurrence: None)
  Receive Date: 20100716
  Receipt Date: 20100705
  Transmission Date: 20110219
  Serious: Yes (Other)
  Sender: FDA-Public Use
  Company Number: US-PFIZER INC-2010084226

PATIENT
  Sex: Female
  Weight: 126.98 kg

DRUGS (7)
  1. CHANTIX [Suspect]
     Indication: SMOKING CESSATION THERAPY
     Dosage: 0.5 MG, 1X/DAY
     Route: 048
     Dates: start: 20090509, end: 20090523
  2. TERBINAFINE [Concomitant]
     Indication: BACTERIAL INFECTION
     Dosage: UNK
  3. DOXYCYCLINE [Concomitant]
     Indication: SKIN BACTERIAL INFECTION
     Dosage: UNK
  4. ALBUTEROL [Concomitant]
     Indication: CHRONIC OBSTRUCTIVE PULMONARY DISEASE
     Dosage: UNK
  5. ALBUTEROL [Concomitant]
     Indication: ASTHMA
  6. ALBUTEROL [Concomitant]
     Dosage: UNK
     Route: 050
  7. ALBUTEROL [Concomitant]

REACTIONS (5)
  - AGGRESSION [None]
  - ANXIETY [None]
  - CRYING [None]
  - HYPERVENTILATION [None]
  - SCREAMING [None]
